FAERS Safety Report 4348348-3 (Version None)
Quarter: 2004Q2

REPORT INFORMATION
  Report Type: 
  Country: None (occurrence: None)
  Receive Date: 20040427
  Receipt Date: 20040416
  Transmission Date: 20050107
  Serious: Yes (Other)
  Sender: FDA-Public Use
  Company Number: GB-GLAXOSMITHKLINE-B0330847A

PATIENT
  Age: 59 Year
  Sex: Female

DRUGS (1)
  1. SEROXAT [Suspect]
     Route: 065
     Dates: start: 19940101

REACTIONS (7)
  - DEMENTIA [None]
  - DRUG WITHDRAWAL SYNDROME [None]
  - NIGHTMARE [None]
  - PANIC ATTACK [None]
  - VERTIGO [None]
  - VISUAL DISTURBANCE [None]
  - WEIGHT INCREASED [None]
